FAERS Safety Report 8152402-8 (Version None)
Quarter: 2012Q1

REPORT INFORMATION
  Report Type: 
  Country: None (occurrence: None)
  Receive Date: 20120103
  Receipt Date: 20111024
  Transmission Date: 20120608
  Serious: No
  Sender: FDA-Public Use
  Company Number: AE-2011-001779

PATIENT
  Sex: Male
  Weight: 77.1115 kg

DRUGS (3)
  1. INCIVEK [Suspect]
     Dosage: 6 DOSAGE FORMS (2 DOSAGE FORMS,3 IN 1 D),ORAL
     Route: 048
     Dates: start: 20110919
  2. PEGINTERFERON (PEGINTERFERON ALFA-2A) [Concomitant]
  3. RIBAVIRIN [Concomitant]

REACTIONS (10)
  - ANORECTAL DISCOMFORT [None]
  - FATIGUE [None]
  - EYE IRRITATION [None]
  - ANAL PRURITUS [None]
  - HEADACHE [None]
  - RASH [None]
  - INFLUENZA LIKE ILLNESS [None]
  - DECREASED APPETITE [None]
  - ABDOMINAL PAIN UPPER [None]
  - MYALGIA [None]
